FAERS Safety Report 8815982 (Version 5)
Quarter: 2013Q3

REPORT INFORMATION
  Report Type: Spontaneous
  Country: US (occurrence: US)
  Receive Date: 20120928
  Receipt Date: 20130725
  Transmission Date: 20140515
  Serious: Yes (Hospitalization, Disabling, Other)
  Sender: FDA-Public Use
  Company Number: US-009507513-1209USA010327

PATIENT
  Sex: Female
  Weight: 54.42 kg

DRUGS (6)
  1. FOSAMAX [Suspect]
     Indication: OSTEOPOROSIS
     Dosage: 70 MG, QW
     Route: 048
     Dates: start: 200508
  2. ALENDRONATE SODIUM [Suspect]
     Indication: OSTEOPOROSIS
     Dosage: 70 MG, QW
     Dates: start: 200804, end: 201011
  3. KLOR-CON [Concomitant]
     Indication: RHEUMATOID ARTHRITIS
     Dosage: UNK
     Dates: start: 2006
  4. METHOTREXATE [Concomitant]
     Indication: RHEUMATOID ARTHRITIS
     Dosage: UNK
     Dates: start: 2006, end: 2011
  5. CELEBREX [Concomitant]
     Indication: RHEUMATOID ARTHRITIS
     Dosage: UNK
     Dates: start: 2008
  6. HYDROCHLOROTHIAZIDE [Concomitant]
     Indication: RHEUMATOID ARTHRITIS
     Dosage: UNK
     Dates: start: 2008

REACTIONS (45)
  - Bone debridement [Unknown]
  - Bone debridement [Unknown]
  - Bone graft [Unknown]
  - Bone graft [Unknown]
  - Thyroidectomy [Unknown]
  - Knee arthroplasty [Unknown]
  - Renal failure chronic [Not Recovered/Not Resolved]
  - Bone debridement [Unknown]
  - Renal failure acute [Unknown]
  - Osteonecrosis of jaw [Not Recovered/Not Resolved]
  - Tooth loss [Unknown]
  - Adverse event [Unknown]
  - Impaired healing [Unknown]
  - Gingival disorder [Unknown]
  - Gingivitis [Unknown]
  - Tooth infection [Unknown]
  - Jaw operation [Unknown]
  - Blood calcium increased [Unknown]
  - Blood parathyroid hormone increased [Unknown]
  - Anxiety [Unknown]
  - Salpingo-oophorectomy bilateral [Unknown]
  - Hypertension [Unknown]
  - Explorative laparotomy [Unknown]
  - Hysterectomy [Unknown]
  - Incisional drainage [Unknown]
  - Fistula [Unknown]
  - Nephrolithiasis [Unknown]
  - Infection [Unknown]
  - Hyperlipidaemia [Unknown]
  - Spinal cord disorder [Unknown]
  - Scoliosis [Unknown]
  - Spinal compression fracture [Unknown]
  - Computerised tomogram abnormal [Unknown]
  - Carotid artery stenosis [Unknown]
  - Knee operation [Unknown]
  - Hyperkalaemia [Unknown]
  - Hypercalcaemia [Unknown]
  - Restrictive pulmonary disease [Unknown]
  - Hypothyroidism [Unknown]
  - Hand deformity [Unknown]
  - Tooth abscess [Unknown]
  - Sinus disorder [Unknown]
  - Surgery [Unknown]
  - Osteomyelitis [Unknown]
  - Diarrhoea [Unknown]
